FAERS Safety Report 8345247-7 (Version None)
Quarter: 2012Q2

REPORT INFORMATION
  Report Type: 
  Country: None (occurrence: None)
  Receive Date: 20120508
  Receipt Date: 20120501
  Transmission Date: 20120825
  Serious: Yes (Other)
  Sender: FDA-Public Use
  Company Number: US-BAYER-2011-060318

PATIENT
  Age: 69 Year
  Sex: Male

DRUGS (13)
  1. CRESTOR [Concomitant]
     Indication: BLOOD CHOLESTEROL INCREASED
     Dosage: UNK
     Dates: start: 20010101
  2. GADOLINIUM IN UNSPECIFIED DRUG [Suspect]
     Indication: ANGIOGRAM
     Dosage: UNK
     Dates: start: 20040413, end: 20040413
  3. SENSIPAR [Concomitant]
     Indication: BLOOD CALCIUM INCREASED
  4. NEPHROVITE [VIT C,VIT H,B5,B12,B9,B3,B6,B2,B1 HCL] [Concomitant]
     Indication: VITAMIN SUPPLEMENTATION
     Dosage: UNK
     Dates: start: 20010101
  5. ISOSORBIDE DINITRATE [Concomitant]
     Indication: HYPERTENSION
     Dosage: UNK
     Dates: start: 20010101
  6. GADOLINIUM IN UNSPECIFIED DRUG [Suspect]
     Indication: NUCLEAR MAGNETIC RESONANCE IMAGING
     Dosage: UNK
     Dates: start: 20040421, end: 20040421
  7. PHOSLO [Concomitant]
     Indication: BLOOD PHOSPHORUS INCREASED
  8. OXYCONTIN [Concomitant]
     Indication: PAIN
     Dosage: UNK
     Dates: start: 20010101
  9. ZEMPLAR [Concomitant]
  10. MAGNEVIST [Suspect]
     Indication: NUCLEAR MAGNETIC RESONANCE IMAGING SPINAL
     Dosage: UNK
     Route: 042
     Dates: start: 20050222, end: 20050222
  11. EPOGEN [Concomitant]
     Indication: RED BLOOD CELL ABNORMALITY
     Dosage: UNK
     Dates: start: 20010101
  12. MINOXIDIL [Concomitant]
     Indication: HYPERTENSION
     Dosage: UNK
     Dates: start: 20010101
  13. ALLOPURINOL [Concomitant]
     Indication: GOUT

REACTIONS (17)
  - OEDEMA PERIPHERAL [None]
  - MUSCULAR WEAKNESS [None]
  - LACERATION [None]
  - SKIN PLAQUE [None]
  - NEPHROGENIC SYSTEMIC FIBROSIS [None]
  - MOBILITY DECREASED [None]
  - SUBCUTANEOUS NODULE [None]
  - SKIN DISCOLOURATION [None]
  - NODULE [None]
  - SKIN INDURATION [None]
  - ABASIA [None]
  - DRY SKIN [None]
  - SKIN EXFOLIATION [None]
  - INJURY [None]
  - PAIN IN EXTREMITY [None]
  - HAND DEFORMITY [None]
  - SKIN TIGHTNESS [None]
